FAERS Safety Report 19238362 (Version 3)
Quarter: 2021Q2

REPORT INFORMATION
  Report Type: Report from Study
  Country: FR (occurrence: FR)
  Receive Date: 20210510
  Receipt Date: 20210603
  Transmission Date: 20210717
  Serious: Yes (Death, Hospitalization, Other)
  Sender: FDA-Public Use
  Company Number: FR-GLAXOSMITHKLINE-FR2021EME100408

PATIENT
  Age: 75 Year
  Sex: Female
  Weight: 65 kg

DRUGS (4)
  1. DOSTARLIMAB [Suspect]
     Active Substance: DOSTARLIMAB
     Dosage: 500 MG/DAY
     Route: 042
     Dates: start: 20210310, end: 20210310
  2. DOSTARLIMAB [Suspect]
     Active Substance: DOSTARLIMAB
     Dosage: 500 MG/DAY
     Route: 042
     Dates: start: 20210331, end: 20210331
  3. DOSTARLIMAB [Suspect]
     Active Substance: DOSTARLIMAB
     Indication: ENDOMETRIAL NEOPLASM
     Dosage: 500 MG/DAY
     Route: 042
     Dates: start: 20210128, end: 20210128
  4. DOSTARLIMAB [Suspect]
     Active Substance: DOSTARLIMAB
     Dosage: 500 MG/DAY
     Route: 042
     Dates: start: 20210219, end: 20210219

REACTIONS (3)
  - Subileus [Unknown]
  - Death [Fatal]
  - Malignant neoplasm progression [Unknown]

NARRATIVE: CASE EVENT DATE: 202105
